FAERS Safety Report 4865308-4 (Version None)
Quarter: 2005Q4

REPORT INFORMATION
  Report Type: 
  Country: None (occurrence: None)
  Receive Date: 20051223
  Receipt Date: 20051220
  Transmission Date: 20060501
  Serious: Yes (Hospitalization)
  Sender: FDA-Public Use
  Company Number: 2005UW19145

PATIENT
  Age: 57 Year
  Sex: Female

DRUGS (5)
  1. TOPROL-XL [Suspect]
     Indication: HYPERTENSION
     Route: 048
     Dates: start: 20040101
  2. TOPROL-XL [Suspect]
     Route: 048
  3. DIOVAN [Concomitant]
  4. CLONIDINE [Concomitant]
  5. LIPITOR [Concomitant]

REACTIONS (5)
  - ATRIAL FIBRILLATION [None]
  - CHEST PAIN [None]
  - HEART RATE DECREASED [None]
  - HERPES ZOSTER [None]
  - HYPERTENSION [None]
